FAERS Safety Report 4595972-9 (Version None)
Quarter: 2005Q1

REPORT INFORMATION
  Report Type: 
  Country: None (occurrence: None)
  Receive Date: 20050224
  Receipt Date: 20050211
  Transmission Date: 20050727
  Serious: Yes (Hospitalization, Other)
  Sender: FDA-Public Use
  Company Number: 2005030407

PATIENT
  Age: 49 Year
  Sex: Male

DRUGS (1)
  1. CELEBREX [Suspect]
     Indication: ARTHRALGIA
     Dosage: (200 MG, 1 IN 1 D)
     Dates: end: 20041221

REACTIONS (2)
  - GASTROINTESTINAL HAEMORRHAGE [None]
  - ULCER [None]
